FAERS Safety Report 10477226 (Version 3)
Quarter: 2014Q4

REPORT INFORMATION
  Report Type: Spontaneous
  Country: DE (occurrence: DE)
  Receive Date: 20140926
  Receipt Date: 20141024
  Transmission Date: 20150528
  Serious: Yes (Death, Hospitalization, Other)
  Sender: FDA-Public Use
  Company Number: DE-BRISTOL-MYERS SQUIBB COMPANY-21190046

PATIENT
  Age: 58 Year
  Sex: Male

DRUGS (1)
  1. YERVOY [Suspect]
     Active Substance: IPILIMUMAB
     Indication: MALIGNANT MELANOMA
     Dosage: 3-4 DOSES BETWEEN NOV-2013 TO FEB-2014
     Route: 042
     Dates: start: 201311, end: 20140213

REACTIONS (5)
  - Gastrooesophageal reflux disease [Unknown]
  - Metastasis [Unknown]
  - Intestinal perforation [Fatal]
  - Colitis [Fatal]
  - Duodenitis [Unknown]

NARRATIVE: CASE EVENT DATE: 201402
